FAERS Safety Report 5635337-1 (Version None)
Quarter: 2008Q1

REPORT INFORMATION
  Report Type: 
  Country: None (occurrence: None)
  Receive Date: 20080222
  Receipt Date: 20080211
  Transmission Date: 20080703
  Serious: Yes (Death, Congenital Anomaly, Other)
  Sender: FDA-Public Use
  Company Number: US-PFIZER INC-2008013340

PATIENT
  Sex: Male
  Weight: 2.8 kg

DRUGS (6)
  1. NEURONTIN [Suspect]
     Route: 064
     Dates: start: 20070101, end: 20070526
  2. DITROPAN [Suspect]
     Route: 064
     Dates: start: 20070101, end: 20070526
  3. REBIF [Suspect]
     Route: 064
     Dates: start: 20070101, end: 20070526
  4. PROVIGIL [Suspect]
     Route: 064
     Dates: start: 20070101, end: 20070526
  5. CRESTOR [Suspect]
     Route: 064
     Dates: start: 20070101, end: 20070526
  6. GLUCOVANCE [Suspect]
     Route: 064
     Dates: start: 20070101, end: 20070526

REACTIONS (10)
  - CONGENITAL ANOMALY [None]
  - CONGENITAL MUSCULOSKELETAL ANOMALY [None]
  - CYANOSIS NEONATAL [None]
  - DEATH [None]
  - DRUG EXPOSURE DURING PREGNANCY [None]
  - NECK DEFORMITY [None]
  - PULMONARY MALFORMATION [None]
  - RIB HYPOPLASIA [None]
  - SPINE MALFORMATION [None]
  - TALIPES [None]
